FAERS Safety Report 15785522 (Version 1)
Quarter: 2019Q1

REPORT INFORMATION
  Report Type: Spontaneous
  Country: US (occurrence: US)
  Receive Date: 20190102
  Receipt Date: 20190102
  Transmission Date: 20190417
  Serious: Yes (Other)
  Sender: FDA-Public Use
  Company Number: None

PATIENT
  Age: 35 Year
  Sex: Female
  Weight: 72 kg

DRUGS (1)
  1. DULOXETINE. [Suspect]
     Active Substance: DULOXETINE
     Indication: FIBROMYALGIA
     Dosage: ?          QUANTITY:1 CAPSULE(S);?
     Route: 048
     Dates: start: 20160601

REACTIONS (9)
  - Exposure via breast milk [None]
  - Nausea [None]
  - Withdrawal syndrome [None]
  - Product quality control issue [None]
  - Product complaint [None]
  - Paraesthesia [None]
  - Impaired driving ability [None]
  - Vertigo [None]
  - Dizziness [None]

NARRATIVE: CASE EVENT DATE: 20190102
